FAERS Safety Report 15448405 (Version 2)
Quarter: 2018Q4

REPORT INFORMATION
  Report Type: Spontaneous
  Country: US (occurrence: US)
  Receive Date: 20180929
  Receipt Date: 20181008
  Transmission Date: 20190204
  Serious: No
  Sender: FDA-Public Use
  Company Number: US-TEVA-2018-US-958249

PATIENT
  Sex: Female

DRUGS (1)
  1. TEVA PENICILLIN V POTASSIUM [Suspect]
     Active Substance: PENICILLIN V POTASSIUM
     Indication: STREPTOCOCCAL INFECTION
     Route: 048
     Dates: start: 20180920

REACTIONS (2)
  - Pharyngeal paraesthesia [Unknown]
  - Pharyngeal hypoaesthesia [Unknown]
